FAERS Safety Report 7038501-2 (Version None)
Quarter: 2010Q4

REPORT INFORMATION
  Report Type: 
  Country: None (occurrence: None)
  Receive Date: 20101011
  Receipt Date: 20100415
  Transmission Date: 20110411
  Serious: No
  Sender: FDA-Public Use
  Company Number: US-PFIZER INC-2010022927

PATIENT
  Sex: Female
  Weight: 72.562 kg

DRUGS (4)
  1. GABAPENTIN [Suspect]
     Indication: NEURALGIA
     Dosage: 300 MG, 3X/DAY
     Route: 048
     Dates: start: 20091113
  2. GABAPENTIN [Suspect]
     Dosage: 300 MG, 3X/DAY
     Dates: start: 20100111
  3. ACICLOVIR [Concomitant]
     Dosage: 200 MG, UNK
     Dates: start: 20091210
  4. HYDROXYZINE [Concomitant]
     Dosage: 25 MG, UNK
     Dates: start: 20100110

REACTIONS (2)
  - FLUSHING [None]
  - URTICARIA [None]
